FAERS Safety Report 7643906-2 (Version None)
Quarter: 2011Q3

REPORT INFORMATION
  Report Type: 
  Country: None (occurrence: None)
  Receive Date: 20110729
  Receipt Date: 20110330
  Transmission Date: 20111222
  Serious: No
  Sender: FDA-Public Use
  Company Number: US-GLAXOSMITHKLINE-A0920711A

PATIENT
  Age: 66 Year
  Sex: Female

DRUGS (7)
  1. IMITREX [Suspect]
     Indication: MIGRAINE
     Route: 048
  2. NAPROXEN (ALEVE) [Concomitant]
  3. ADVIL ALLERGY SINUS [Concomitant]
  4. SUMATRIPTAN SUCCINATE [Suspect]
     Indication: MIGRAINE
     Dosage: 100MG AS REQUIRED
     Route: 048
  5. NORTRIPTYLINE HCL [Concomitant]
  6. ATENOLOL [Concomitant]
  7. VITAMIN TAB [Concomitant]

REACTIONS (6)
  - DRUG INEFFECTIVE [None]
  - BURNING SENSATION [None]
  - THERAPEUTIC RESPONSE DECREASED [None]
  - MENTAL IMPAIRMENT [None]
  - FATIGUE [None]
  - MUSCLE TIGHTNESS [None]
